FAERS Safety Report 7371184-0 (Version None)
Quarter: 2011Q1

REPORT INFORMATION
  Report Type: 
  Country: None (occurrence: None)
  Receive Date: 20110324
  Receipt Date: 20110316
  Transmission Date: 20110831
  Serious: Yes (Other)
  Sender: FDA-Public Use
  Company Number: JP-ASTELLAS-2011JP001959

PATIENT
  Age: 18 Year
  Sex: Male

DRUGS (8)
  1. AMPHOTERICIN B [Concomitant]
     Indication: ANTIFUNGAL PROPHYLAXIS
     Route: 048
  2. CYCLOPHOSPHAMIDE [Concomitant]
     Dosage: 750 MG/M2, UNKNOWN/D
     Route: 065
  3. FLUDARABINE [Concomitant]
     Dosage: 25 MG/M2, UNKNOWN/D
     Route: 065
  4. ANTI-THYMOCYTE GLOBULIN NOS [Concomitant]
     Dosage: 2.5 MG/KG, UNKNOWN/D
     Route: 065
  5. ACYCLOVIR [Concomitant]
     Indication: ANTIVIRAL PROPHYLAXIS
     Route: 065
  6. PROGRAF [Suspect]
     Indication: PROPHYLAXIS AGAINST GRAFT VERSUS HOST DISEASE
     Dosage: 0.02 MG/KG, UNKNOWN/D
     Route: 041
  7. PROGRAF [Suspect]
     Dosage: UNK
     Route: 048
  8. RITUXIMAB [Concomitant]
     Indication: EPSTEIN-BARR VIRUS INFECTION
     Route: 065

REACTIONS (5)
  - DRUG INEFFECTIVE [None]
  - EPSTEIN-BARR VIRUS INFECTION [None]
  - CHRONIC GRAFT VERSUS HOST DISEASE [None]
  - CYTOMEGALOVIRUS VIRAEMIA [None]
  - SEPSIS [None]
